FAERS Safety Report 17719271 (Version 1)
Quarter: 2020Q2

REPORT INFORMATION
  Report Type: Spontaneous
  Country: US (occurrence: US)
  Receive Date: 20200428
  Receipt Date: 20200428
  Transmission Date: 20200714
  Serious: Yes (Disabling, Other)
  Sender: FDA-Public Use
  Company Number: None

PATIENT
  Age: 20 Year
  Sex: Female
  Weight: 63 kg

DRUGS (3)
  1. WOMEN^S ONE-A-DAY VITAMIN [Concomitant]
  2. VENLAFAXINE HYDROCHLORIDE EXTENDED-RELEASE CAPSULES, USP; [Suspect]
     Active Substance: VENLAFAXINE HYDROCHLORIDE
     Indication: DEPRESSION
     Route: 048
     Dates: start: 20171001, end: 20200214
  3. TRANS-RESERVATROL [Concomitant]

REACTIONS (4)
  - Sensory loss [None]
  - Loss of libido [None]
  - Sexual dysfunction [None]
  - Anorgasmia [None]

NARRATIVE: CASE EVENT DATE: 20200214
